FAERS Safety Report 19775290 (Version 1)
Quarter: 2021Q3

REPORT INFORMATION
  Report Type: Report from Study
  Country: US (occurrence: US)
  Receive Date: 20210901
  Receipt Date: 20210901
  Transmission Date: 20211014
  Serious: Yes (Hospitalization, Other)
  Sender: FDA-Public Use
  Company Number: US-JAZZ-2021-US-015805

PATIENT
  Age: 24 Year
  Sex: Female

DRUGS (4)
  1. XYREM [Suspect]
     Active Substance: SODIUM OXYBATE
     Indication: NARCOLEPSY
     Dosage: 2.25 GRAM, BID
     Route: 048
     Dates: start: 201701, end: 2017
  2. XYREM [Suspect]
     Active Substance: SODIUM OXYBATE
     Indication: CATAPLEXY
     Dosage: DOSE ADJUSTMENTS
     Route: 048
     Dates: start: 2017, end: 201702
  3. XYREM [Suspect]
     Active Substance: SODIUM OXYBATE
     Dosage: 3.75 GRAM
     Route: 048
     Dates: start: 201702, end: 20210820
  4. XYREM [Suspect]
     Active Substance: SODIUM OXYBATE
     Dosage: 3 GRAM
     Route: 048
     Dates: start: 201702, end: 20210820

REACTIONS (4)
  - Hospitalisation [Unknown]
  - Asthma [Not Recovered/Not Resolved]
  - Surgery [Unknown]
  - Neurogenic bladder [Not Recovered/Not Resolved]

NARRATIVE: CASE EVENT DATE: 20210824
